FAERS Safety Report 8061388-6 (Version None)
Quarter: 2012Q1

REPORT INFORMATION
  Report Type: 
  Country: None (occurrence: None)
  Receive Date: 20120120
  Receipt Date: 20111005
  Transmission Date: 20120608
  Serious: No
  Sender: FDA-Public Use
  Company Number: US-ALLERGAN-1112545US

PATIENT
  Age: 77 Year
  Sex: Female
  Weight: 70.295 kg

DRUGS (1)
  1. RESTASIS [Suspect]
     Indication: DRY EYE
     Dosage: 1 GTT, BID
     Route: 047
     Dates: start: 20110630, end: 20110715

REACTIONS (3)
  - NAUSEA [None]
  - DEPRESSION [None]
  - DECREASED APPETITE [None]
